FAERS Safety Report 14070688 (Version 1)
Quarter: 2017Q4

REPORT INFORMATION
  Report Type: Spontaneous
  Country: US (occurrence: US)
  Receive Date: 20171010
  Receipt Date: 20171010
  Transmission Date: 20180321
  Serious: No
  Sender: FDA-Public Use
  Company Number: US-JNJFOC-20170718405

PATIENT
  Age: 66 Year
  Sex: Female

DRUGS (17)
  1. ELIQUIS [Concomitant]
     Active Substance: APIXABAN
  2. PROCHLORPERAZINE. [Concomitant]
     Active Substance: PROCHLORPERAZINE
  3. MULTIVITAMINS [Concomitant]
     Active Substance: VITAMINS
  4. CALTRATE [Concomitant]
     Active Substance: CALCIUM CARBONATE
  5. ATENOLOL. [Concomitant]
     Active Substance: ATENOLOL
  6. RANITIDINE. [Concomitant]
     Active Substance: RANITIDINE
  7. GABAPENTIN. [Concomitant]
     Active Substance: GABAPENTIN
  8. MAGNESIUM [Concomitant]
     Active Substance: MAGNESIUM
  9. IMBRUVICA [Suspect]
     Active Substance: IBRUTINIB
     Indication: B-CELL LYMPHOMA
     Dosage: 560 MG, QD
     Route: 048
     Dates: start: 20170224
  10. HYDROCODONE BITARTRATE AND ACETAMINOPHEN [Concomitant]
     Active Substance: ACETAMINOPHEN\HYDROCODONE BITARTRATE
  11. FUROSEMIDE. [Concomitant]
     Active Substance: FUROSEMIDE
  12. LEVOTHROID [Concomitant]
     Active Substance: LEVOTHYROXINE SODIUM
  13. NEURONTIN [Concomitant]
     Active Substance: GABAPENTIN
  14. OXYCODONE [Concomitant]
     Active Substance: OXYCODONE
  15. POTASSIUM [Concomitant]
     Active Substance: POTASSIUM
  16. PRIMIDONE. [Concomitant]
     Active Substance: PRIMIDONE
  17. VITAMIN D [Concomitant]
     Active Substance: CHOLECALCIFEROL

REACTIONS (1)
  - Swelling [Not Recovered/Not Resolved]

NARRATIVE: CASE EVENT DATE: 20170801
